FAERS Safety Report 16118769 (Version 3)
Quarter: 2019Q4

REPORT INFORMATION
  Report Type: Spontaneous
  Country: GR (occurrence: GR)
  Receive Date: 20190326
  Receipt Date: 20191009
  Transmission Date: 20200122
  Serious: Yes (Hospitalization, Other)
  Sender: FDA-Public Use
  Company Number: GR-BAXTER-2019BAX005405

PATIENT
  Age: 22 Year
  Sex: Male

DRUGS (4)
  1. INFLIXIMAB [Concomitant]
     Active Substance: INFLIXIMAB
     Indication: COLITIS
     Dosage: 5 MG/KG
     Route: 065
  2. METRONIDAZOLE/BAXTER SOLUTION FOR INTRAVENOUS INFUSION 500 MG/100 ML [Suspect]
     Active Substance: METRONIDAZOLE\SODIUM CHLORIDE
     Indication: CLOSTRIDIUM DIFFICILE INFECTION
     Dosage: 500 UNK, TID
     Route: 042
  3. VANCOMYCIN [Suspect]
     Active Substance: VANCOMYCIN
     Indication: CLOSTRIDIUM DIFFICILE INFECTION
     Dosage: 500 UNK, QID
     Route: 048
  4. PREDNISOLONE. [Suspect]
     Active Substance: PREDNISOLONE
     Indication: COLITIS
     Dosage: 25 MG
     Route: 048

REACTIONS (8)
  - Drug ineffective [Unknown]
  - Enterococcal infection [Unknown]
  - Haematochezia [Recovering/Resolving]
  - Cytomegalovirus infection [Unknown]
  - Bacteraemia [Unknown]
  - Clostridium difficile infection [Recovering/Resolving]
  - Hypotension [Recovering/Resolving]
  - Pyrexia [Recovering/Resolving]
